FAERS Safety Report 5928868-8 (Version None)
Quarter: 2008Q4

REPORT INFORMATION
  Report Type: 
  Country: None (occurrence: None)
  Receive Date: 20081020
  Receipt Date: 20081003
  Transmission Date: 20090506
  Serious: Yes (Life-Threatening, Hospitalization, Disabling)
  Sender: FDA-Public Use
  Company Number: DSA_32493_2008

PATIENT
  Sex: Male

DRUGS (9)
  1. TAVOR /00273201/ (TAVOR - LORAZEPAM) 5 MG (NOT SPECIFIED) [Suspect]
     Indication: DRUG USE FOR UNKNOWN INDICATION
     Dosage: (4 MG QD; )  (2 MG QD, PRESCRIBED DOSE 5 MG AS NEEDED INTRAMUSCULAR)
     Route: 030
     Dates: end: 20061021
  2. TAVOR /00273201/ (TAVOR - LORAZEPAM) 5 MG (NOT SPECIFIED) [Suspect]
     Indication: DRUG USE FOR UNKNOWN INDICATION
     Dosage: (4 MG QD; )  (2 MG QD, PRESCRIBED DOSE 5 MG AS NEEDED INTRAMUSCULAR)
     Route: 030
     Dates: start: 20061022
  3. ERGENYL CHRONO (ERGENYL CHRONO - VALPROATE SODIUM/VALPROIC ACID) (NOT [Suspect]
     Indication: DRUG USE FOR UNKNOWN INDICATION
     Dosage: 600 MG QD ORAL
     Route: 048
     Dates: start: 20061011, end: 20061022
  4. EUNERPAN (EUNERPAN - MELPERONE HYDROCHLORIDE) (NOT SPECIFIED) [Suspect]
     Indication: DRUG USE FOR UNKNOWN INDICATION
     Dosage: 75 MG QD ORAL
     Route: 048
     Dates: start: 20060101, end: 20061022
  5. HALDOL [Suspect]
     Indication: DRUG USE FOR UNKNOWN INDICATION
     Dosage: 5 MG QD
  6. SOLIAN (SOLIAN - AMISULPRIDE) (NOT SPECIFIED) [Suspect]
     Indication: DRUG USE FOR UNKNOWN INDICATION
     Dosage: (600 MG QD), (800 MG QD ORAL)
     Route: 048
     Dates: start: 20061009, end: 20061020
  7. SOLIAN (SOLIAN - AMISULPRIDE) (NOT SPECIFIED) [Suspect]
     Indication: DRUG USE FOR UNKNOWN INDICATION
     Dosage: (600 MG QD), (800 MG QD ORAL)
     Route: 048
     Dates: start: 20061021, end: 20061022
  8. TEGRETOL [Suspect]
     Indication: DRUG USE FOR UNKNOWN INDICATION
     Dosage: 400 MG QD ORAL
     Route: 048
     Dates: start: 20061021, end: 20061022
  9. LEPONEX [Concomitant]

REACTIONS (6)
  - CARDIAC ARREST [None]
  - DRUG INTERACTION [None]
  - DYSPHAGIA [None]
  - ENURESIS [None]
  - HYPERVENTILATION [None]
  - PLATELET COUNT DECREASED [None]
